FAERS Safety Report 24150825 (Version 1)
Quarter: 2024Q3

REPORT INFORMATION
  Report Type: Spontaneous
  Country: JP (occurrence: JP)
  Receive Date: 20240730
  Receipt Date: 20240730
  Transmission Date: 20241017
  Serious: Yes (Hospitalization, Other)
  Sender: AMGEN
  Company Number: JP-KYOWAKIRIN-2024KK017412

PATIENT

DRUGS (1)
  1. PEGFILGRASTIM [Suspect]
     Active Substance: PEGFILGRASTIM
     Indication: Peripheral blood stem cell apheresis
     Dosage: 7.2 MG, SINGLE
     Route: 058
     Dates: start: 202407, end: 202407

REACTIONS (1)
  - Metastases to central nervous system [Unknown]

NARRATIVE: CASE EVENT DATE: 20240701
